FAERS Safety Report 6945216-5 (Version None)
Quarter: 2010Q3

REPORT INFORMATION
  Report Type: 
  Country: None (occurrence: None)
  Receive Date: 20100827
  Receipt Date: 20100610
  Transmission Date: 20110219
  Serious: No
  Sender: FDA-Public Use
  Company Number: US-KINGPHARMUSA00001-K201000725

PATIENT
  Age: 47 Year
  Sex: Female
  Weight: 62.585 kg

DRUGS (8)
  1. FLECTOR [Suspect]
     Indication: PROCEDURAL PAIN
     Dosage: 1 PATCH, Q12H
     Route: 061
     Dates: start: 20100608, end: 20100609
  2. CELEBREX [Concomitant]
  3. PERCOCET [Concomitant]
  4. LEXAPRO [Concomitant]
     Indication: ANTIDEPRESSANT THERAPY
  5. ROBAXIN [Concomitant]
  6. ORAL CONTRACEPTIVE NOS [Concomitant]
     Indication: CONTRACEPTION
  7. VESICARE [Concomitant]
  8. AMBIEN [Concomitant]

REACTIONS (3)
  - MALAISE [None]
  - NAUSEA [None]
  - VOMITING [None]
